FAERS Safety Report 13764202 (Version 1)
Quarter: 2017Q3

REPORT INFORMATION
  Report Type: Spontaneous
  Country: IT (occurrence: IT)
  Receive Date: 20170718
  Receipt Date: 20170718
  Transmission Date: 20171127
  Serious: Yes (Other)
  Sender: FDA-Public Use
  Company Number: IT-PFIZER INC-2017306834

PATIENT
  Age: 71 Year
  Sex: Female

DRUGS (3)
  1. INITISS [Concomitant]
     Indication: HYPERTENSION
     Dosage: UNK
  2. PREGABALIN. [Suspect]
     Active Substance: PREGABALIN
     Dosage: UNK
     Dates: start: 20170627
  3. BRIVIRAC [Suspect]
     Active Substance: BRIVUDINE
     Indication: HERPES ZOSTER
     Dosage: UNK
     Dates: start: 20170627

REACTIONS (5)
  - Urticaria [Unknown]
  - Hypersensitivity [Unknown]
  - Palatal oedema [Unknown]
  - Heart rate increased [Unknown]
  - Body temperature increased [Unknown]

NARRATIVE: CASE EVENT DATE: 20170707
